FAERS Safety Report 7241297-2 (Version None)
Quarter: 2011Q1

REPORT INFORMATION
  Report Type: 
  Country: None (occurrence: None)
  Receive Date: 20110124
  Receipt Date: 20110117
  Transmission Date: 20110831
  Serious: Yes (Hospitalization)
  Sender: FDA-Public Use
  Company Number: B0694438A

PATIENT
  Age: 76 Year
  Sex: Male
  Weight: 68 kg

DRUGS (3)
  1. FLUTICASONE PROPIONATE [Concomitant]
     Dosage: 800MCG PER DAY
     Route: 055
  2. SALMETEROL XINAFOATE [Concomitant]
     Dosage: 100MCG PER DAY
     Route: 055
  3. SULTANOL [Suspect]
     Indication: ASTHMA
     Route: 055

REACTIONS (7)
  - ARTERIOSPASM CORONARY [None]
  - SHOCK [None]
  - ACUTE MYOCARDIAL INFARCTION [None]
  - DYSPNOEA [None]
  - WHEEZING [None]
  - HYPERHIDROSIS [None]
  - CHEST DISCOMFORT [None]
